FAERS Safety Report 7459276-9 (Version None)
Quarter: 2011Q2

REPORT INFORMATION
  Report Type: 
  Country: None (occurrence: None)
  Receive Date: 20110426
  Receipt Date: 20110411
  Transmission Date: 20111010
  Serious: Yes (Death, Congenital Anomaly)
  Sender: FDA-Public Use
  Company Number: 031050

PATIENT
  Sex: Female
  Weight: 0.2 kg

DRUGS (3)
  1. FOLIC ACID [Concomitant]
  2. KEPPRA [Suspect]
     Indication: PARTIAL SEIZURES
     Dosage: (500 MG BID, 500-0-500 MG MG TRANSPLACENTAL), (1500 MG, 500-0-1000 MG TRANSPLACENTAL)
     Route: 064
     Dates: start: 20101201, end: 20110311
  3. KEPPRA [Suspect]
     Indication: PARTIAL SEIZURES
     Dosage: (500 MG BID, 500-0-500 MG MG TRANSPLACENTAL), (1500 MG, 500-0-1000 MG TRANSPLACENTAL)
     Route: 064
     Dates: start: 20100401, end: 20101201

REACTIONS (7)
  - FOETAL MALFORMATION [None]
  - SCOLIOSIS [None]
  - THANATOPHORIC DWARFISM [None]
  - ABORTION INDUCED [None]
  - MATERNAL DRUGS AFFECTING FOETUS [None]
  - DILATATION VENTRICULAR [None]
  - LIMB REDUCTION DEFECT [None]
